FAERS Safety Report 6904840-6 (Version None)
Quarter: 2010Q3

REPORT INFORMATION
  Report Type: 
  Country: None (occurrence: None)
  Receive Date: 20100804
  Receipt Date: 20090720
  Transmission Date: 20110219
  Serious: No
  Sender: FDA-Public Use
  Company Number: US-PFIZER INC-2009203635

PATIENT
  Sex: Female
  Weight: 71.7 kg

DRUGS (5)
  1. LYRICA [Suspect]
     Indication: FIBROMYALGIA
     Dosage: 100 MG, 2X/DAY
     Dates: start: 20080101
  2. EVOXAC [Concomitant]
     Dosage: UNK
  3. FOLIC ACID [Concomitant]
     Dosage: UNK
  4. COD-LIVER OIL [Concomitant]
     Dosage: UNK
  5. DARVOCET [Concomitant]
     Dosage: UNK

REACTIONS (6)
  - DIPLOPIA [None]
  - MUSCLE SPASMS [None]
  - MUSCULOSKELETAL STIFFNESS [None]
  - MYALGIA [None]
  - VISION BLURRED [None]
  - VISUAL ACUITY REDUCED [None]
